FAERS Safety Report 18711542 (Version 1)
Quarter: 2021Q1

REPORT INFORMATION
  Report Type: Spontaneous
  Country: US (occurrence: US)
  Receive Date: 20210107
  Receipt Date: 20210107
  Transmission Date: 20210419
  Serious: No
  Sender: FDA-Public Use
  Company Number: US-GW PHARMA-202012USGW04602

PATIENT

DRUGS (4)
  1. EPIDIOLEX [Suspect]
     Active Substance: CANNABIDIOL
     Dosage: 450 MILLIGRAM, BID
     Route: 048
  2. EPIDIOLEX [Suspect]
     Active Substance: CANNABIDIOL
     Indication: FOCAL DYSCOGNITIVE SEIZURES
     Dosage: 400 MILLIGRAM, BID
     Route: 048
  3. EPIDIOLEX [Suspect]
     Active Substance: CANNABIDIOL
     Indication: PARTIAL SEIZURES
     Dosage: 300 MILLIGRAM, BID
     Route: 048
  4. EPIDIOLEX [Suspect]
     Active Substance: CANNABIDIOL
     Indication: EPILEPSY
     Dosage: 350 MILLIGRAM, BID
     Route: 048

REACTIONS (2)
  - Product dose omission issue [Unknown]
  - Product use in unapproved indication [Unknown]

NARRATIVE: CASE EVENT DATE: 20201225
